APPROVED DRUG PRODUCT: AMOXICILLIN AND CLAVULANATE POTASSIUM
Active Ingredient: AMOXICILLIN; CLAVULANATE POTASSIUM
Strength: 875MG;EQ 125MG BASE
Dosage Form/Route: TABLET;ORAL
Application: A203824 | Product #001 | TE Code: AB
Applicant: HIKMA PHARMACEUTICALS
Approved: Aug 23, 2016 | RLD: No | RS: No | Type: RX